FAERS Safety Report 6719924-5 (Version None)
Quarter: 2010Q2

REPORT INFORMATION
  Report Type: 
  Country: None (occurrence: None)
  Receive Date: 20100507
  Receipt Date: 20100428
  Transmission Date: 20101027
  Serious: Yes (Other)
  Sender: FDA-Public Use
  Company Number: 2010SP021174

PATIENT
  Age: 72 Year
  Sex: Male

DRUGS (2)
  1. MIRTAZAPINE [Suspect]
     Indication: AFFECTIVE DISORDER
     Dosage: 30 MG;QD
  2. LINEZOLID [Suspect]
     Indication: NOSOCOMIAL INFECTION
     Dosage: 600 MG;Q12H

REACTIONS (1)
  - SEROTONIN SYNDROME [None]
